FAERS Safety Report 14046185 (Version 1)
Quarter: 2017Q4

REPORT INFORMATION
  Report Type: Spontaneous
  Country: US (occurrence: US)
  Receive Date: 20171005
  Receipt Date: 20171005
  Transmission Date: 20180321
  Serious: Yes (Death, Life-Threatening)
  Sender: FDA-Public Use
  Company Number: US-AMNEAL PHARMACEUTICALS COMPANY GMBH-2017AGH00001

PATIENT
  Sex: Female

DRUGS (46)
  1. METHYLPREDNISOLONE SODIUM SUCCINATE. [Suspect]
     Active Substance: METHYLPREDNISOLONE SODIUM SUCCINATE
     Dosage: 70 MG, 4X/DAY
     Route: 042
     Dates: start: 20170720, end: 20170722
  2. METHYLPREDNISOLONE SODIUM SUCCINATE. [Suspect]
     Active Substance: METHYLPREDNISOLONE SODIUM SUCCINATE
     Dosage: 60 MG, 4X/DAY
     Route: 042
     Dates: start: 20170723, end: 20170728
  3. PANTOPRAZOLE [Concomitant]
     Active Substance: PANTOPRAZOLE
     Dosage: UNK
     Route: 065
     Dates: start: 20170712, end: 20170727
  4. CALCITROL [Concomitant]
     Active Substance: CALCITRIOL
     Dosage: UNK
     Route: 065
     Dates: start: 20170720, end: 20170726
  5. SERTRALINE [Concomitant]
     Active Substance: SERTRALINE HYDROCHLORIDE
     Dosage: UNK
     Route: 065
     Dates: start: 20170508, end: 20170727
  6. PANTOPRAZOLE [Concomitant]
     Active Substance: PANTOPRAZOLE
     Dosage: UNK
     Route: 065
     Dates: start: 20170624, end: 20170728
  7. LEVOFLOXACIN. [Concomitant]
     Active Substance: LEVOFLOXACIN
     Dosage: UNK
     Route: 065
     Dates: start: 20170624, end: 20170726
  8. ALPRAZOLAM. [Concomitant]
     Active Substance: ALPRAZOLAM
     Dosage: UNK
     Route: 065
     Dates: start: 20170715, end: 20170725
  9. ALBUTEROL. [Concomitant]
     Active Substance: ALBUTEROL
     Dosage: UNK
     Route: 065
     Dates: start: 20170623, end: 20170719
  10. OCTREOTIDE. [Concomitant]
     Active Substance: OCTREOTIDE
     Dosage: UNK
     Route: 065
     Dates: start: 20170721, end: 20170724
  11. FUROSEMIDE. [Concomitant]
     Active Substance: FUROSEMIDE
     Dosage: UNK
     Route: 065
     Dates: start: 20170725, end: 20170728
  12. ENOXAPARIN [Concomitant]
     Active Substance: ENOXAPARIN
     Dosage: UNK
     Route: 065
     Dates: start: 20170624, end: 20170721
  13. URSODIOL. [Concomitant]
     Active Substance: URSODIOL
     Dosage: UNK
     Route: 065
     Dates: start: 20170624, end: 20170727
  14. METHYLPREDNISOLONE SODIUM SUCCINATE. [Suspect]
     Active Substance: METHYLPREDNISOLONE SODIUM SUCCINATE
     Dosage: 80 MG, 4X/DAY
     Route: 042
     Dates: start: 20170711, end: 20170719
  15. INCB018424 [Concomitant]
     Active Substance: RUXOLITINIB
     Indication: ACUTE GRAFT VERSUS HOST DISEASE
     Dosage: 10 MG, 2X/DAY
     Route: 048
     Dates: start: 20170706, end: 20170717
  16. LORAZEPAM. [Concomitant]
     Active Substance: LORAZEPAM
     Dosage: UNK
     Route: 065
     Dates: start: 20170714, end: 20170721
  17. LACTOBACILLUS RHAMNOSUS [Concomitant]
     Active Substance: LACTOBACILLUS RHAMNOSUS
     Dosage: UNK
     Route: 065
     Dates: start: 20170718, end: 20170727
  18. CALCIUM CARBONATE. [Concomitant]
     Active Substance: CALCIUM CARBONATE
     Dosage: UNK
     Route: 065
     Dates: start: 20170720, end: 20170726
  19. LOPERAMIDE [Concomitant]
     Active Substance: LOPERAMIDE
     Dosage: UNK
     Route: 065
     Dates: start: 20170627, end: 20170726
  20. BECLOMETHASONE [Concomitant]
     Active Substance: BECLOMETHASONE
     Dosage: UNK
     Route: 065
     Dates: start: 20170629, end: 20170728
  21. MAGNESSIUM SULPHATE [Concomitant]
     Dosage: UNK
     Route: 065
     Dates: start: 20170630, end: 20170728
  22. VEDOLIZUMAB [Concomitant]
     Active Substance: VEDOLIZUMAB
     Dosage: 300 MG, 1X/DAY
     Route: 042
     Dates: start: 20170713, end: 20170713
  23. SIROLIMUS. [Concomitant]
     Active Substance: SIROLIMUS
     Indication: ACUTE GRAFT VERSUS HOST DISEASE
     Dosage: 0.5 MG, 4X/DAY
     Route: 048
     Dates: start: 20170718, end: 20170727
  24. PENTAMIDINE [Concomitant]
     Active Substance: PENTAMIDINE
     Dosage: UNK
     Route: 065
     Dates: start: 20170623, end: 20170719
  25. TPN [Concomitant]
     Active Substance: AMINO ACIDS\DEXTROSE\ELECTROLYTES NOS\SOYBEAN OIL
     Dosage: UNK
     Route: 065
  26. PROCHLORPERAZINE. [Concomitant]
     Active Substance: PROCHLORPERAZINE
     Dosage: UNK
     Route: 065
     Dates: start: 20170625, end: 20170708
  27. METHYLPREDNISOLONE SODIUM SUCCINATE. [Suspect]
     Active Substance: METHYLPREDNISOLONE SODIUM SUCCINATE
     Indication: ACUTE GRAFT VERSUS HOST DISEASE
     Dosage: 100 MG, 4X/DAY
     Route: 042
     Dates: start: 20170626, end: 20170710
  28. ENBREL [Concomitant]
     Active Substance: ETANERCEPT
     Indication: ACUTE GRAFT VERSUS HOST DISEASE
     Dosage: 20 MG, 2X/WEEK
     Route: 058
     Dates: start: 20170720, end: 20170728
  29. POTASSIUM PHOSPHATE [Concomitant]
     Active Substance: POTASSIUM PHOSPHATE
     Dosage: UNK
     Route: 065
     Dates: start: 20170720, end: 20170727
  30. MIDAZOLAM [Concomitant]
     Active Substance: MIDAZOLAM HYDROCHLORIDE
     Dosage: UNK
     Route: 065
     Dates: start: 20170725, end: 20170725
  31. DIPHENOXYLATE/ ATROPINE [Concomitant]
     Dosage: UNK
     Route: 065
     Dates: start: 20170630, end: 20170715
  32. VEDOLIZUMAB [Concomitant]
     Active Substance: VEDOLIZUMAB
     Indication: ACUTE GRAFT VERSUS HOST DISEASE
     Dosage: 300 MG, 1X/DAY
     Route: 042
     Dates: start: 20170629, end: 20170629
  33. CYCLOBENZAPRINE. [Concomitant]
     Active Substance: CYCLOBENZAPRINE
     Dosage: UNK
     Route: 065
     Dates: start: 20170722, end: 20170725
  34. ALBUMIN HUMAN [Concomitant]
     Active Substance: ALBUMIN HUMAN
     Dosage: UNK
     Route: 065
     Dates: start: 20170725, end: 20170728
  35. GRANISETRON [Concomitant]
     Active Substance: GRANISETRON
     Dosage: UNK
     Route: 065
     Dates: start: 20170625, end: 20170709
  36. CALCIUM GLUCONATE. [Concomitant]
     Active Substance: CALCIUM GLUCONATE
     Dosage: UNK
     Route: 065
     Dates: start: 20170711, end: 20170720
  37. INSULIN [Concomitant]
     Active Substance: INSULIN NOS
     Dosage: UNK
     Route: 065
     Dates: start: 20170712, end: 20170728
  38. TIZANIDINE. [Concomitant]
     Active Substance: TIZANIDINE
     Dosage: UNK
     Route: 065
     Dates: start: 20170722, end: 20170727
  39. COLYTE [Concomitant]
     Active Substance: POLYETHYLENE GLYCOL 3350\POTASSIUM CHLORIDE\SODIUM BICARBONATE\SODIUM CHLORIDE\SODIUM SULFATE ANHYDROUS
     Dosage: UNK
     Route: 065
     Dates: start: 20170725, end: 20170725
  40. ACYCLOVIR. [Concomitant]
     Active Substance: ACYCLOVIR
     Dosage: UNK
     Route: 065
     Dates: start: 20170624, end: 20170728
  41. MONTELUKAST [Concomitant]
     Active Substance: MONTELUKAST SODIUM
     Dosage: UNK
     Route: 065
     Dates: end: 20170727
  42. DICYCLOMINE [Concomitant]
     Active Substance: DICYCLOMINE HYDROCHLORIDE
     Dosage: UNK
     Route: 065
     Dates: start: 20170625, end: 20170708
  43. FENTANYL. [Concomitant]
     Active Substance: FENTANYL
     Dosage: UNK
     Route: 065
     Dates: start: 20170626, end: 20170728
  44. POTASSIUM CHLORIDE. [Concomitant]
     Active Substance: POTASSIUM CHLORIDE
     Dosage: UNK
     Route: 065
     Dates: start: 20170711, end: 20170716
  45. ZOLEDRONIC ACID. [Concomitant]
     Active Substance: ZOLEDRONIC ACID
     Dosage: UNK
     Route: 065
     Dates: start: 20170717, end: 20170717
  46. POSACONAZOLE [Concomitant]
     Active Substance: POSACONAZOLE
     Dosage: UNK
     Route: 065
     Dates: start: 20170624, end: 20170728

REACTIONS (6)
  - Septic shock [Fatal]
  - Hepatic failure [Fatal]
  - Staphylococcal bacteraemia [Fatal]
  - Skin ulcer [None]
  - Complication associated with device [None]
  - Acute kidney injury [Fatal]

NARRATIVE: CASE EVENT DATE: 20170726
